FAERS Safety Report 7758768-2 (Version None)
Quarter: 2011Q3

REPORT INFORMATION
  Report Type: 
  Country: None (occurrence: None)
  Receive Date: 20110919
  Receipt Date: 20110906
  Transmission Date: 20111222
  Serious: No
  Sender: FDA-Public Use
  Company Number: US-B.I. PHARMACEUTICALS,INC./RIDGEFIELD-2011-BP-21600BP

PATIENT
  Age: 67 Year
  Sex: Male

DRUGS (3)
  1. PCN [Suspect]
     Indication: TOOTH INFECTION
  2. AZILECT [Concomitant]
     Indication: PARKINSON'S DISEASE
  3. PRADAXA [Suspect]
     Indication: ATRIAL FIBRILLATION
     Dosage: 300 MG
     Route: 048

REACTIONS (5)
  - PRURITUS GENERALISED [None]
  - LIP SWELLING [None]
  - TOOTH INFECTION [None]
  - AURICULAR SWELLING [None]
  - SWELLING FACE [None]
